FAERS Safety Report 23043539 (Version 2)
Quarter: 2023Q4

REPORT INFORMATION
  Report Type: Report from Study
  Country: CA (occurrence: CA)
  Receive Date: 20231009
  Receipt Date: 20231127
  Transmission Date: 20240110
  Serious: Yes (Death, Hospitalization, Other)
  Sender: FDA-Public Use
  Company Number: CA-JNJFOC-20230715620

PATIENT
  Sex: Female
  Weight: 108 kg

DRUGS (48)
  1. SELEXIPAG [Suspect]
     Active Substance: SELEXIPAG
     Indication: Pulmonary arterial hypertension
     Route: 048
     Dates: start: 20220805, end: 20220829
  2. SELEXIPAG [Suspect]
     Active Substance: SELEXIPAG
     Route: 048
     Dates: start: 20220829, end: 20220905
  3. SELEXIPAG [Suspect]
     Active Substance: SELEXIPAG
     Route: 048
     Dates: start: 20220905, end: 20220915
  4. SELEXIPAG [Suspect]
     Active Substance: SELEXIPAG
     Route: 048
     Dates: start: 20220915, end: 20220919
  5. SELEXIPAG [Suspect]
     Active Substance: SELEXIPAG
     Route: 048
     Dates: start: 20220919, end: 20220926
  6. SELEXIPAG [Suspect]
     Active Substance: SELEXIPAG
     Route: 048
     Dates: start: 20220926, end: 20221003
  7. SELEXIPAG [Suspect]
     Active Substance: SELEXIPAG
     Route: 048
     Dates: start: 20221003, end: 20221010
  8. SELEXIPAG [Suspect]
     Active Substance: SELEXIPAG
     Route: 048
     Dates: start: 20221010, end: 202304
  9. MACITENTAN [Suspect]
     Active Substance: MACITENTAN
     Indication: Pulmonary arterial hypertension
     Route: 048
     Dates: start: 20200322
  10. EPOPROSTENOL SODIUM [Suspect]
     Active Substance: EPOPROSTENOL SODIUM
     Indication: Pulmonary arterial hypertension
     Route: 042
     Dates: start: 20230328, end: 20230329
  11. EPOPROSTENOL SODIUM [Suspect]
     Active Substance: EPOPROSTENOL SODIUM
     Route: 042
     Dates: start: 20230329, end: 20230330
  12. EPOPROSTENOL SODIUM [Suspect]
     Active Substance: EPOPROSTENOL SODIUM
     Route: 042
     Dates: start: 20230330, end: 20230403
  13. EPOPROSTENOL SODIUM [Suspect]
     Active Substance: EPOPROSTENOL SODIUM
     Route: 042
     Dates: start: 20230403, end: 20230405
  14. EPOPROSTENOL SODIUM [Suspect]
     Active Substance: EPOPROSTENOL SODIUM
     Route: 042
     Dates: start: 20230405, end: 20230406
  15. EPOPROSTENOL SODIUM [Suspect]
     Active Substance: EPOPROSTENOL SODIUM
     Route: 042
     Dates: start: 20230406, end: 20230407
  16. EPOPROSTENOL SODIUM [Suspect]
     Active Substance: EPOPROSTENOL SODIUM
     Route: 042
     Dates: start: 20230407, end: 20231119
  17. ADCIRCA [Suspect]
     Active Substance: TADALAFIL
     Indication: Pulmonary arterial hypertension
     Route: 048
     Dates: start: 201305, end: 20230127
  18. ADEMPAS [Concomitant]
     Active Substance: RIOCIGUAT
     Indication: Pulmonary arterial hypertension
     Dosage: TOTAL DAILY DOSE: 3
     Route: 048
     Dates: start: 20230130, end: 20230224
  19. ADEMPAS [Concomitant]
     Active Substance: RIOCIGUAT
     Dosage: TOTAL DAILY DOSE: 4.5
     Route: 048
     Dates: start: 20230224, end: 20230301
  20. ADEMPAS [Concomitant]
     Active Substance: RIOCIGUAT
     Dosage: TOTAL DAILY DOSE: 6
     Route: 048
     Dates: start: 20230301, end: 20230304
  21. ADEMPAS [Concomitant]
     Active Substance: RIOCIGUAT
     Dosage: TOTAL DAILY DOSE: 7.5
     Route: 048
     Dates: start: 20230304, end: 20231119
  22. TREPROSTINIL [Concomitant]
     Active Substance: TREPROSTINIL
     Indication: Pulmonary arterial hypertension
     Dosage: TOTAL DAILY DOSE: 2.6
     Route: 048
     Dates: start: 201403, end: 2014
  23. TREPROSTINIL [Concomitant]
     Active Substance: TREPROSTINIL
     Dosage: TOTAL DAILY DOSE: 18
     Route: 048
     Dates: start: 2014, end: 2015
  24. TREPROSTINIL [Concomitant]
     Active Substance: TREPROSTINIL
     Dosage: TOTAL DAILY DOSE: 9
     Route: 048
     Dates: start: 2015, end: 2015
  25. TREPROSTINIL [Concomitant]
     Active Substance: TREPROSTINIL
     Dosage: TOTAL DAILY DOSE: 9.3
     Route: 048
     Dates: start: 2015, end: 2016
  26. TREPROSTINIL [Concomitant]
     Active Substance: TREPROSTINIL
     Dosage: TOTAL DAILY DOSE: 9
     Route: 048
     Dates: start: 201606, end: 201610
  27. TREPROSTINIL [Concomitant]
     Active Substance: TREPROSTINIL
     Dosage: TOTAL DAILY DOSE: 8.5
     Route: 048
     Dates: start: 201610, end: 201702
  28. TREPROSTINIL [Concomitant]
     Active Substance: TREPROSTINIL
     Dosage: TOTAL DAILY DOSE: 6
     Route: 048
     Dates: start: 201702, end: 201905
  29. TREPROSTINIL [Concomitant]
     Active Substance: TREPROSTINIL
     Dosage: TOTAL DAILY DOSE: 3
     Route: 048
     Dates: start: 201905, end: 2020
  30. NIFEDIPINE [Concomitant]
     Active Substance: NIFEDIPINE
     Indication: Raynaud^s phenomenon
     Route: 048
     Dates: start: 2011
  31. QUETIAPINE FUMARATE [Concomitant]
     Active Substance: QUETIAPINE FUMARATE
     Indication: Affective disorder
     Dates: start: 20230630, end: 20231119
  32. PROPYLENE GLYCOL [Concomitant]
     Active Substance: PROPYLENE GLYCOL
     Indication: Multiple allergies
     Route: 055
     Dates: start: 20230120, end: 20231119
  33. MELATONIN [Concomitant]
     Active Substance: MELATONIN
     Indication: Sleep disorder
     Route: 048
     Dates: start: 20231025, end: 20231119
  34. MOMETASONE FUROATE [Concomitant]
     Active Substance: MOMETASONE FUROATE
     Indication: Hypersensitivity
     Route: 055
     Dates: start: 20230701, end: 20231119
  35. VITAMINS NOS [Concomitant]
     Active Substance: VITAMINS
     Indication: Vitamin supplementation
     Dates: start: 20230630, end: 20231119
  36. VANCOMYCIN [Concomitant]
     Active Substance: VANCOMYCIN
     Indication: Infection
     Route: 048
     Dates: start: 20231025, end: 20231104
  37. SODIUM FERRIC GLUCONATE COMPLEX [Concomitant]
     Active Substance: SODIUM FERRIC GLUCONATE COMPLEX
     Indication: Anaemia
     Route: 042
     Dates: start: 20230809
  38. SERTRALINE HYDROCHLORIDE [Concomitant]
     Active Substance: SERTRALINE HYDROCHLORIDE
     Indication: Depression
     Route: 048
     Dates: start: 20220614
  39. POLYETHYLENE GLYCOL 400 [Concomitant]
     Active Substance: POLYETHYLENE GLYCOL 400
     Indication: Constipation
     Route: 048
     Dates: start: 20230630
  40. PANTOPRAZOLE [Concomitant]
     Active Substance: PANTOPRAZOLE
     Indication: Hyperchlorhydria
     Route: 048
     Dates: start: 20220614
  41. LEVOTHYROXINE SODIUM [Concomitant]
     Active Substance: LEVOTHYROXINE SODIUM
     Indication: Hypothyroidism
     Route: 048
     Dates: start: 20230109
  42. HYDROMORPHONE [Concomitant]
     Active Substance: HYDROMORPHONE
     Indication: Pain
     Route: 048
     Dates: start: 20230630, end: 20230830
  43. FUROSEMIDE [Concomitant]
     Active Substance: FUROSEMIDE
     Indication: Diuretic therapy
     Route: 048
     Dates: start: 20230630, end: 20231025
  44. EZETIMIBE [Concomitant]
     Active Substance: EZETIMIBE
     Indication: Blood cholesterol decreased
     Route: 048
     Dates: start: 20220614
  45. DARBEPOETIN ALFA [Concomitant]
     Active Substance: DARBEPOETIN ALFA
     Indication: Anaemia
     Route: 042
     Dates: start: 20231025, end: 20231028
  46. CHOLECALCIFEROL [Concomitant]
     Active Substance: CHOLECALCIFEROL
     Indication: Vitamin D
     Route: 048
     Dates: start: 20220614
  47. ATORVASTATIN CALCIUM [Concomitant]
     Active Substance: ATORVASTATIN CALCIUM
     Indication: Blood cholesterol decreased
     Route: 048
     Dates: start: 20231025
  48. ACETAMINOPHEN [Concomitant]
     Active Substance: ACETAMINOPHEN
     Indication: Pain
     Route: 048
     Dates: start: 20230630

REACTIONS (7)
  - Haemorrhage intracranial [Fatal]
  - Dyspnoea [Fatal]
  - Pulmonary arterial hypertension [Unknown]
  - Influenza like illness [Unknown]
  - COVID-19 pneumonia [Recovering/Resolving]
  - Fall [Unknown]
  - Respiratory failure [Unknown]

NARRATIVE: CASE EVENT DATE: 20230821
